FAERS Safety Report 8231219-X (Version None)
Quarter: 2012Q1

REPORT INFORMATION
  Report Type: 
  Country: None (occurrence: None)
  Receive Date: 20120323
  Receipt Date: 20120323
  Transmission Date: 20120608
  Serious: Yes (Hospitalization)
  Sender: FDA-Public Use
  Company Number: None

PATIENT
  Age: 58 Year
  Sex: Female
  Weight: 77.11 kg

DRUGS (1)
  1. TORADOL [Suspect]
     Indication: MIGRAINE

REACTIONS (6)
  - MALAISE [None]
  - AGITATION [None]
  - ANXIETY [None]
  - CHILLS [None]
  - PANIC ATTACK [None]
  - FLUSHING [None]
